FAERS Safety Report 15616488 (Version 1)
Quarter: 2018Q4

REPORT INFORMATION
  Report Type: Spontaneous
  Country: US (occurrence: US)
  Receive Date: 20181114
  Receipt Date: 20181114
  Transmission Date: 20190205
  Serious: Yes (Death, Other)
  Sender: FDA-Public Use
  Company Number: US-CORDEN PHARMA LATINA S.P.A.-US-2018COR000135

PATIENT
  Sex: Female

DRUGS (6)
  1. ANASTROZOLE. [Suspect]
     Active Substance: ANASTROZOLE
     Indication: FALLOPIAN TUBE CANCER STAGE III
     Dosage: UNK
     Route: 065
  2. CARBOPLATIN. [Suspect]
     Active Substance: CARBOPLATIN
     Indication: FALLOPIAN TUBE CANCER STAGE III
     Dosage: 6 CYCLES
     Route: 065
  3. PACLITAXEL. [Suspect]
     Active Substance: PACLITAXEL
     Indication: FALLOPIAN TUBE CANCER STAGE III
     Dosage: 6 CYCLES
     Route: 065
  4. GEMCITABINE [Suspect]
     Active Substance: GEMCITABINE\GEMCITABINE HYDROCHLORIDE
     Indication: FALLOPIAN TUBE CANCER STAGE III
     Dosage: UNK
     Route: 065
  5. DOXORUBICIN                        /00330902/ [Suspect]
     Active Substance: DOXORUBICIN
     Indication: FALLOPIAN TUBE CANCER STAGE III
     Dosage: UNK
     Route: 065
  6. TAMOXIFEN                          /00388702/ [Suspect]
     Active Substance: TAMOXIFEN
     Indication: FALLOPIAN TUBE CANCER STAGE III
     Dosage: UNK
     Route: 065

REACTIONS (1)
  - Acute myeloid leukaemia [Fatal]

NARRATIVE: CASE EVENT DATE: 2015
